FAERS Safety Report 6491015-0 (Version None)
Quarter: 2009Q4

REPORT INFORMATION
  Report Type: 
  Country: None (occurrence: None)
  Receive Date: 20091211
  Receipt Date: 20091201
  Transmission Date: 20100525
  Serious: Yes (Other)
  Sender: FDA-Public Use
  Company Number: US-ROCHE-673928

PATIENT
  Age: 53 Year
  Sex: Female

DRUGS (2)
  1. AVASTIN [Suspect]
     Route: 065
  2. TAXOL [Suspect]
     Route: 065

REACTIONS (2)
  - BONE PAIN [None]
  - SPINAL FRACTURE [None]
